FAERS Safety Report 8987149 (Version 2)
Quarter: 2013Q2

REPORT INFORMATION
  Report Type: Spontaneous
  Country: US (occurrence: US)
  Receive Date: 20121227
  Receipt Date: 20130502
  Transmission Date: 20140414
  Serious: Yes (Other)
  Sender: FDA-Public Use
  Company Number: US-BAYER-2012-135218

PATIENT
  Age: 46 Year
  Sex: Female

DRUGS (5)
  1. YASMIN [Suspect]
     Dosage: UNK
     Dates: start: 20050212, end: 20060503
  2. LOTREL [Concomitant]
  3. AMITRIPTYLINE [Concomitant]
  4. NAPROXEN [Concomitant]
  5. OXYCODONE [Concomitant]

REACTIONS (8)
  - Deep vein thrombosis [None]
  - Emotional distress [None]
  - Pain [None]
  - Injury [None]
  - General physical health deterioration [None]
  - Anxiety [None]
  - Pain [None]
  - Oedema peripheral [None]
